FAERS Safety Report 9470038 (Version 2)
Quarter: 2013Q3

REPORT INFORMATION
  Report Type: Spontaneous
  Country: US (occurrence: US)
  Receive Date: 20130822
  Receipt Date: 20130916
  Transmission Date: 20140515
  Serious: Yes (Other)
  Sender: FDA-Public Use
  Company Number: US-BAYER-2013-101256

PATIENT
  Age: 35 Year
  Sex: Female
  Weight: 95.24 kg

DRUGS (1)
  1. MIRENA [Suspect]
     Indication: CONTRACEPTION
     Dosage: 20 MCG/24HR, CONT
     Route: 015
     Dates: start: 20130621, end: 20130827

REACTIONS (12)
  - Vaginal haemorrhage [Not Recovered/Not Resolved]
  - Irritability [None]
  - Mood swings [None]
  - Loss of libido [None]
  - Breast tenderness [None]
  - Anxiety [None]
  - Chest pain [None]
  - Pain in extremity [None]
  - Ovarian cyst [None]
  - Anger [None]
  - Agitation [None]
  - Depression [None]
